FAERS Safety Report 4334654-5 (Version None)
Quarter: 2004Q1

REPORT INFORMATION
  Report Type: 
  Country: None (occurrence: None)
  Receive Date: 20040329
  Receipt Date: 20031211
  Transmission Date: 20041129
  Serious: No
  Sender: FDA-Public Use
  Company Number: 03P-163-0244693-00

PATIENT
  Age: 64 Year
  Sex: Female

DRUGS (12)
  1. HUMIRA [Suspect]
     Indication: RHEUMATOID ARTHRITIS
     Dosage: SEE IMAGE
     Route: 058
     Dates: start: 20030801, end: 20031019
  2. HUMIRA [Suspect]
     Indication: RHEUMATOID ARTHRITIS
     Dosage: SEE IMAGE
     Route: 058
     Dates: start: 20031020, end: 20031101
  3. HUMIRA [Suspect]
     Indication: RHEUMATOID ARTHRITIS
     Dosage: SEE IMAGE
     Route: 058
     Dates: start: 20031209
  4. METHOTREXATE [Concomitant]
  5. ROFECOXIB [Concomitant]
  6. PREDNISONE [Concomitant]
  7. GENERIC THYROID [Concomitant]
  8. ROPINIROLE HYDROCHLORIDE [Concomitant]
  9. GABAPENTIN [Concomitant]
  10. MULTI-VITAMIN [Concomitant]
  11. ENALAPRIL MALEATE [Concomitant]
  12. AMLODIPINE BESYLATE [Concomitant]

REACTIONS (4)
  - BLOOD PRESSURE INCREASED [None]
  - COUGH [None]
  - HYPOAESTHESIA [None]
  - NASOPHARYNGITIS [None]
